FAERS Safety Report 10404211 (Version 1)
Quarter: 2014Q1

REPORT INFORMATION
  Report Type: Spontaneous
  Country: US (occurrence: None)
  Receive Date: 20140122
  Receipt Date: 20140122
  Transmission Date: 20141002
  Serious: Yes (Other)
  Sender: FDA-Public Use
  Company Number: AEGR000054

PATIENT
  Age: 63 Year
  Sex: Female
  Weight: 79.4 kg

DRUGS (10)
  1. JUXTAPID (LOMITAPIDE) CAPSULE, 5MG [Suspect]
     Indication: TYPE IIA HYPERLIPIDAEMIA
     Route: 048
     Dates: start: 201303, end: 20130307
  2. COREG (CARVEDILOL) [Concomitant]
  3. BUSPAR (BUSPIRONE HYDROCHLORIDE) [Concomitant]
  4. NEXIUM (ESOMEPRAZOLE SODIUM) [Concomitant]
  5. IMDUR (ISOSORBIDE MONONITRATE) [Concomitant]
  6. CRESTOR (ROSUVASTATIN CALCIUM) [Concomitant]
  7. TRICOR (FENOFIBRATE) [Concomitant]
  8. PROZAC (FLUOXETINE HYDROCHLORIDE) [Concomitant]
  9. LEVOTHYROXINE (LEVOTHYROXINE SODIUM) [Concomitant]
  10. PLAVIX (CLOPIDOGREL BISULFATE) (CLOPIDOGREL BISULFATE) [Concomitant]

REACTIONS (4)
  - Abdominal pain [None]
  - Diarrhoea [None]
  - Headache [None]
  - Inappropriate schedule of drug administration [None]
